FAERS Safety Report 7601444-7 (Version None)
Quarter: 2011Q3

REPORT INFORMATION
  Report Type: 
  Country: None (occurrence: None)
  Receive Date: 20110711
  Receipt Date: 20110629
  Transmission Date: 20111222
  Serious: Yes (Other)
  Sender: FDA-Public Use
  Company Number: JP-ELI_LILLY_AND_COMPANY-JP201107000026

PATIENT
  Age: 79 Year
  Sex: Male

DRUGS (1)
  1. GEMZAR [Suspect]
     Route: 042

REACTIONS (1)
  - LUNG DISORDER [None]
